FAERS Safety Report 5577082-7 (Version None)
Quarter: 2007Q4

REPORT INFORMATION
  Report Type: 
  Country: None (occurrence: None)
  Receive Date: 20071228
  Receipt Date: 20071222
  Transmission Date: 20080405
  Serious: Yes (Other)
  Sender: FDA-Public Use
  Company Number: US-PFIZER INC-2007107970

PATIENT
  Sex: Male
  Weight: 90.909 kg

DRUGS (3)
  1. CHANTIX [Suspect]
     Indication: SMOKING CESSATION THERAPY
     Route: 048
  2. TRAMADOL HCL [Concomitant]
     Route: 048
  3. PREVACID [Concomitant]
     Route: 048

REACTIONS (1)
  - HALLUCINATION, AUDITORY [None]
